FAERS Safety Report 8574915-7 (Version None)
Quarter: 2012Q3

REPORT INFORMATION
  Report Type: 
  Country: None (occurrence: None)
  Receive Date: 20120807
  Receipt Date: 20120802
  Transmission Date: 20120928
  Serious: No
  Sender: FDA-Public Use
  Company Number: US-009507513-1206USA03370

PATIENT

DRUGS (2)
  1. NASONEX [Concomitant]
  2. SINGULAIR [Suspect]
     Indication: COUGH
     Dosage: 5 MG, QD
     Route: 048
     Dates: start: 20120618, end: 20120618

REACTIONS (6)
  - SCREAMING [None]
  - OVERDOSE [None]
  - SLEEP DISORDER [None]
  - HYPERKINESIA [None]
  - CRYING [None]
  - SLEEP TERROR [None]
